FAERS Safety Report 9918279 (Version 4)
Quarter: 2014Q2

REPORT INFORMATION
  Report Type: Report from Study
  Country: BR (occurrence: BR)
  Receive Date: 20140224
  Receipt Date: 20140519
  Transmission Date: 20141212
  Serious: Yes (Other)
  Sender: FDA-Public Use
  Company Number: BR-ROCHE-1109760

PATIENT
  Sex: Female
  Weight: 79 kg

DRUGS (8)
  1. ACTEMRA [Suspect]
     Indication: RHEUMATOID ARTHRITIS
     Dosage: MOST RECENT ON 01-NOV-2013
     Route: 042
     Dates: start: 20110121
  2. METHOTREXATE [Suspect]
     Indication: PRODUCT USED FOR UNKNOWN INDICATION
     Route: 065
  3. BENADRYL (BRAZIL) [Suspect]
     Indication: HYPERSENSITIVITY
     Route: 065
  4. OMEPRAZOLE [Concomitant]
     Route: 065
  5. PREDNISONE [Concomitant]
     Route: 065
  6. FOLIC ACID [Concomitant]
     Route: 065
  7. SULFASALAZINE [Concomitant]
     Route: 065
  8. ABLOK [Concomitant]

REACTIONS (10)
  - Gait disturbance [Recovering/Resolving]
  - Red blood cell sedimentation rate decreased [Recovered/Resolved]
  - Arthralgia [Not Recovered/Not Resolved]
  - Joint swelling [Not Recovered/Not Resolved]
  - Stress [Unknown]
  - Alopecia [Recovered/Resolved]
  - Fatigue [Unknown]
  - Drug dose omission [Unknown]
  - Somnolence [Unknown]
  - Insomnia [Not Recovered/Not Resolved]
